FAERS Safety Report 22165754 (Version 1)
Quarter: 2023Q2

REPORT INFORMATION
  Report Type: Spontaneous
  Country: US (occurrence: US)
  Receive Date: 20230403
  Receipt Date: 20230403
  Transmission Date: 20230721
  Serious: No
  Sender: FDA-Public Use
  Company Number: US-CIPLA LTD.-2022US02249

PATIENT

DRUGS (5)
  1. SERTRALINE [Suspect]
     Active Substance: SERTRALINE HYDROCHLORIDE
     Indication: Anxiety
     Dosage: 25 MILLIGRAM, QD
     Route: 065
     Dates: start: 20210605, end: 20220303
  2. SERTRALINE [Suspect]
     Active Substance: SERTRALINE HYDROCHLORIDE
     Indication: Depression
     Dosage: UNK, QD
     Route: 065
     Dates: start: 20210605, end: 20220303
  3. SERTRALINE [Suspect]
     Active Substance: SERTRALINE HYDROCHLORIDE
     Dosage: UNK
     Route: 065
     Dates: start: 20220304, end: 202203
  4. AMANTADINE [Concomitant]
     Active Substance: AMANTADINE
     Indication: Anxiety
     Dosage: 100 MILLIGRAM, QD FROM END OF OCTOBER
     Route: 065
  5. AMANTADINE [Concomitant]
     Active Substance: AMANTADINE
     Indication: Depression

REACTIONS (6)
  - Disorientation [Unknown]
  - Brain fog [Unknown]
  - Anxiety [Unknown]
  - Drug ineffective [Unknown]
  - Product substitution issue [Unknown]
  - Fatigue [Unknown]

NARRATIVE: CASE EVENT DATE: 20220101
